FAERS Safety Report 23271565 (Version 1)
Quarter: 2023Q4

REPORT INFORMATION
  Report Type: Spontaneous
  Country: CN (occurrence: CN)
  Receive Date: 20231207
  Receipt Date: 20231207
  Transmission Date: 20240110
  Serious: Yes (Hospitalization)
  Sender: FDA-Public Use
  Company Number: CN-BAYER-2023A175467

PATIENT
  Age: 39 Year
  Sex: Female
  Weight: 60 kg

DRUGS (2)
  1. AVELOX [Suspect]
     Active Substance: MOXIFLOXACIN HYDROCHLORIDE
     Indication: Upper respiratory tract infection
     Dosage: 0.4 G, QD
     Route: 048
     Dates: start: 20231031, end: 20231031
  2. CEFDINIR [Concomitant]
     Active Substance: CEFDINIR
     Indication: Upper respiratory tract infection
     Dosage: 0.1 G, BID
     Route: 048
     Dates: start: 20231031, end: 20231031

REACTIONS (5)
  - Bronchospasm [Recovered/Resolved]
  - Abdominal pain [Recovered/Resolved]
  - Hyperhidrosis [Recovered/Resolved]
  - Oedema peripheral [Recovered/Resolved]
  - Vomiting [Recovered/Resolved]

NARRATIVE: CASE EVENT DATE: 20231031
